FAERS Safety Report 23949350 (Version 1)
Quarter: 2024Q2

REPORT INFORMATION
  Report Type: Spontaneous
  Country: AR (occurrence: AR)
  Receive Date: 20240607
  Receipt Date: 20240607
  Transmission Date: 20240716
  Serious: Yes (Death, Other)
  Sender: FDA-Public Use
  Company Number: AR-AMGEN-ARGSP2024109015

PATIENT

DRUGS (1)
  1. BLINATUMOMAB [Suspect]
     Active Substance: BLINATUMOMAB
     Indication: B-cell type acute leukaemia
     Dosage: UNK
     Route: 065

REACTIONS (8)
  - Acute lymphocytic leukaemia recurrent [Fatal]
  - Transplantation complication [Fatal]
  - Haematotoxicity [Unknown]
  - Neurotoxicity [Unknown]
  - Infection [Unknown]
  - Febrile neutropenia [Unknown]
  - Therapy non-responder [Unknown]
  - Pyrexia [Unknown]
